FAERS Safety Report 14606095 (Version 2)
Quarter: 2018Q1

REPORT INFORMATION
  Report Type: Spontaneous
  Country: US (occurrence: US)
  Receive Date: 20180307
  Receipt Date: 20180329
  Transmission Date: 20180509
  Serious: Yes (Hospitalization)
  Sender: FDA-Public Use
  Company Number: US-ACCORD-063985

PATIENT
  Age: 34 Year
  Sex: Male
  Weight: 124.74 kg

DRUGS (1)
  1. CLONAZEPAM ACCORD [Suspect]
     Active Substance: CLONAZEPAM
     Indication: PRODUCT USED FOR UNKNOWN INDICATION
     Dosage: STRENGTH: 1 MG
     Route: 048
     Dates: start: 20180205

REACTIONS (10)
  - Cold sweat [Unknown]
  - Major depression [Unknown]
  - Parosmia [Unknown]
  - Chills [Unknown]
  - Withdrawal syndrome [Unknown]
  - Nausea [Unknown]
  - Dysgeusia [Unknown]
  - Hypertension [Unknown]
  - Palpitations [Unknown]
  - Suicidal ideation [Unknown]
